FAERS Safety Report 7754071-5 (Version None)
Quarter: 2011Q3

REPORT INFORMATION
  Report Type: 
  Country: None (occurrence: None)
  Receive Date: 20110915
  Receipt Date: 20110118
  Transmission Date: 20111222
  Serious: No
  Sender: FDA-Public Use
  Company Number: US-BAYER-2011-009612

PATIENT
  Age: 26 Year
  Sex: Female
  Weight: 63.946 kg

DRUGS (2)
  1. ETHINYL ESTRADIOL W/NORGESTREL [Concomitant]
  2. MAGNEVIST [Suspect]
     Indication: NUCLEAR MAGNETIC RESONANCE IMAGING
     Dosage: 13ML IN RIGHT A/C WITH HAND INJECTION
     Route: 042
     Dates: start: 20110119, end: 20110119

REACTIONS (5)
  - ERYTHEMA [None]
  - CHEST PAIN [None]
  - NASAL CONGESTION [None]
  - PRURITUS [None]
  - THROAT IRRITATION [None]
